FAERS Safety Report 20125415 (Version 1)
Quarter: 2021Q4

REPORT INFORMATION
  Report Type: Spontaneous
  Country: US (occurrence: None)
  Receive Date: 20211129
  Receipt Date: 20211129
  Transmission Date: 20220303
  Serious: No
  Sender: FDA-Public Use
  Company Number: 2021A804146

PATIENT
  Age: 49 Year
  Sex: Female

DRUGS (1)
  1. FASENRA [Suspect]
     Active Substance: BENRALIZUMAB
     Indication: Eosinophil count
     Route: 058

REACTIONS (2)
  - Skin lesion [Unknown]
  - Contusion [Unknown]

NARRATIVE: CASE EVENT DATE: 20200101
